FAERS Safety Report 7942617-3 (Version None)
Quarter: 2011Q4

REPORT INFORMATION
  Report Type: 
  Country: None (occurrence: None)
  Receive Date: 20111128
  Receipt Date: 20111123
  Transmission Date: 20120403
  Serious: Yes (Life-Threatening, Hospitalization)
  Sender: FDA-Public Use
  Company Number: US-BRISTOL-MYERS SQUIBB COMPANY-16107732

PATIENT
  Age: 68 Year
  Sex: Male

DRUGS (23)
  1. FOSINOPRIL SODIUM [Concomitant]
     Indication: BLOOD PRESSURE
     Dates: start: 20011105, end: 20110903
  2. TEMAZEPAM [Concomitant]
     Indication: POOR QUALITY SLEEP
     Dates: start: 20110903, end: 20110907
  3. VARDENAFIL HYDROCHLORIDE (LEVITRA) [Concomitant]
     Indication: ERECTILE DYSFUNCTION
     Dates: start: 20090521, end: 20110915
  4. PROMETHAZINE [Concomitant]
     Indication: NAUSEA
     Dates: start: 20110903, end: 20110927
  5. NIACIN [Concomitant]
     Indication: BLOOD CHOLESTEROL
     Dates: start: 20010419, end: 20110915
  6. AMLODIPINE BESYLATE [Concomitant]
     Indication: BLOOD PRESSURE
  7. ACETAMINOPHEN [Concomitant]
     Indication: PAIN
     Dosage: 8SEP2011-11SEP2011
     Dates: start: 20110903, end: 20110911
  8. ALUMINIUM HYDROXIDE+MAGNESIUM HYDROXIDE+MANNITOL+SIMETICONE [Concomitant]
     Indication: DYSPEPSIA
     Dates: start: 20110913, end: 20110927
  9. ONDANSETRON [Concomitant]
     Indication: PREMEDICATION
     Dates: start: 20110826, end: 20110826
  10. ACETAMINOPHEN [Concomitant]
     Indication: PYREXIA
     Dosage: 8SEP2011-11SEP2011
     Dates: start: 20110903, end: 20110911
  11. BISACODYL [Concomitant]
     Indication: CONSTIPATION
     Dates: start: 20110902, end: 20110916
  12. PANTOPRAZOLE [Concomitant]
     Indication: GASTROOESOPHAGEAL REFLUX DISEASE
     Route: 042
     Dates: start: 20110904, end: 20110907
  13. OMEPRAZOLE [Concomitant]
     Indication: GASTROOESOPHAGEAL REFLUX DISEASE
     Dates: start: 20110908
  14. TEGAFUR + GIMERACIL + OTERACIL POTASSIUM [Suspect]
     Indication: METASTATIC GASTRIC CANCER
     Dosage: INTR ON 02SEP11.
     Route: 048
     Dates: start: 20110825
  15. ISOPHANE INSULIN [Concomitant]
     Indication: DIABETES MELLITUS
     Dates: start: 20110613
  16. CYANOCOBALAMIN [Concomitant]
     Indication: VITAMIN SUPPLEMENTATION
     Dates: start: 20110908, end: 20110927
  17. LEVETIRACETAM [Concomitant]
     Indication: CONVULSION
     Dates: start: 20110910
  18. GABAPENTIN [Concomitant]
     Indication: NEURALGIA
     Dates: start: 20110913
  19. MIRTAZAPINE [Concomitant]
     Indication: DEPRESSION
     Dates: start: 20110908
  20. CISPLATIN [Suspect]
     Indication: METASTATIC GASTRIC CANCER
     Dosage: IV DRIP
     Route: 042
     Dates: start: 20110826, end: 20110826
  21. INSULIN ASPART [Concomitant]
     Indication: DIABETES MELLITUS
     Dates: start: 20110903, end: 20110927
  22. DEXAMETHASONE [Concomitant]
     Indication: PROPHYLAXIS OF NAUSEA AND VOMITING
     Dates: start: 20110908, end: 20110927
  23. FERROUS GLUCONATE [Concomitant]
     Indication: MINERAL SUPPLEMENTATION
     Dates: start: 20110903, end: 20110927

REACTIONS (4)
  - CONVULSION [None]
  - GASTROINTESTINAL HAEMORRHAGE [None]
  - BLOOD CREATININE INCREASED [None]
  - ANAEMIA [None]
